FAERS Safety Report 12433176 (Version 1)
Quarter: 2016Q2

REPORT INFORMATION
  Report Type: Spontaneous
  Country: US (occurrence: US)
  Receive Date: 20160603
  Receipt Date: 20160603
  Transmission Date: 20160815
  Serious: No
  Sender: FDA-Public Use
  Company Number: US-009507513-1605USA014501

PATIENT
  Age: 68 Year
  Sex: Female

DRUGS (5)
  1. LOSARTAN POTASSIUM TABLETS [Suspect]
     Active Substance: LOSARTAN POTASSIUM
     Dosage: UNK
  2. CLEOCIN PHOSPHATE [Suspect]
     Active Substance: CLINDAMYCIN PHOSPHATE
     Indication: LOCALISED INFECTION
     Dosage: 300 MG,DOBLE DOSE; IN HER BUTTOCK
     Route: 030
     Dates: start: 20160503
  3. CLEOCIN PHOSPHATE [Suspect]
     Active Substance: CLINDAMYCIN PHOSPHATE
     Dosage: 300 UNK, UNK; IN HER BUTTOCK
     Route: 030
     Dates: start: 20160505
  4. CLEOCIN PHOSPHATE [Suspect]
     Active Substance: CLINDAMYCIN PHOSPHATE
     Dosage: 150 UNK, UNK; IN HER BUTTOCK
     Route: 030
     Dates: start: 20160504
  5. HYDRALAZINE [Concomitant]
     Active Substance: HYDRALAZINE HYDROCHLORIDE
     Indication: BLOOD PRESSURE MEASUREMENT
     Dosage: 10 MG, 4 TIMES A DAY; STARTED TAKING COUPLE OF MONTHS AGO. DOSE WAS VERY VERY LOW

REACTIONS (5)
  - Hyperhidrosis [Recovered/Resolved]
  - Discomfort [Recovered/Resolved]
  - Feeling hot [Recovered/Resolved]
  - Cough [Unknown]
  - Dyspnoea [Recovered/Resolved]

NARRATIVE: CASE EVENT DATE: 20160505
